FAERS Safety Report 15324519 (Version 1)
Quarter: 2018Q3

REPORT INFORMATION
  Report Type: Spontaneous
  Country: US (occurrence: US)
  Receive Date: 20180828
  Receipt Date: 20180828
  Transmission Date: 20181010
  Serious: Yes (Other)
  Sender: FDA-Public Use
  Company Number: US-ROCHE-2174605

PATIENT
  Sex: Female
  Weight: 81.72 kg

DRUGS (1)
  1. ALECENSA [Suspect]
     Active Substance: ALECTINIB HYDROCHLORIDE
     Indication: LUNG CARCINOMA CELL TYPE UNSPECIFIED STAGE IV
     Dosage: 150 MG TABLETS, 4 IN THE MORNING AND 4 AT NIGHT;ONGOING: YES
     Route: 065
     Dates: start: 20180530

REACTIONS (7)
  - Haemorrhoids [Unknown]
  - Haemorrhoidal haemorrhage [Unknown]
  - Diarrhoea [Unknown]
  - Pleural effusion [Unknown]
  - Fatigue [Unknown]
  - Frequent bowel movements [Unknown]
  - Constipation [Recovered/Resolved]
